FAERS Safety Report 25324088 (Version 2)
Quarter: 2025Q2

REPORT INFORMATION
  Report Type: Spontaneous
  Country: US (occurrence: US)
  Receive Date: 20250516
  Receipt Date: 20250530
  Transmission Date: 20250717
  Serious: Yes (Other)
  Sender: BLUEPRINT MEDICINES
  Company Number: US-Blueprint Medicines Corporation-2025-AER-01042

PATIENT
  Age: 67 Year
  Sex: Female
  Weight: 57.15 kg

DRUGS (1)
  1. AYVAKIT [Suspect]
     Active Substance: AVAPRITINIB
     Indication: Indolent systemic mastocytosis
     Route: 065
     Dates: start: 20250308

REACTIONS (2)
  - Fall [Recovered/Resolved]
  - Upper limb fracture [Recovered/Resolved]

NARRATIVE: CASE EVENT DATE: 20250401
